FAERS Safety Report 10044019 (Version 2)
Quarter: 2014Q1

REPORT INFORMATION
  Report Type: Spontaneous
  Country: US (occurrence: US)
  Receive Date: 20140328
  Receipt Date: 20140328
  Transmission Date: 20141002
  Serious: No
  Sender: FDA-Public Use
  Company Number: US-MYLANLABS-2013S1017017

PATIENT
  Sex: Female
  Weight: 66.68 kg

DRUGS (6)
  1. EMSAM (SELEGILINE TRANSDERMAL SYSTEM) [Suspect]
     Indication: DEPRESSION
     Dosage: QD
     Route: 062
     Dates: start: 201208
  2. EMSAM (SELEGILINE TRANSDERMAL SYSTEM) [Suspect]
     Indication: SUICIDAL IDEATION
     Dosage: QD
     Route: 062
     Dates: start: 201208
  3. ATIVAN [Concomitant]
     Indication: ANXIETY
  4. REMERON [Concomitant]
     Indication: DEPRESSION
     Dates: start: 201208
  5. RESTORIL [Concomitant]
     Indication: INSOMNIA
     Dates: start: 201208
  6. VITAMIN [Concomitant]
     Indication: SUPPLEMENTATION THERAPY
     Dosage: TAKEN FOR YEARS

REACTIONS (3)
  - Drug ineffective [Not Recovered/Not Resolved]
  - Depression [Not Recovered/Not Resolved]
  - Application site erythema [Not Recovered/Not Resolved]
